FAERS Safety Report 11594274 (Version 2)
Quarter: 2015Q4

REPORT INFORMATION
  Report Type: Spontaneous
  Country: US (occurrence: None)
  Receive Date: 20151005
  Receipt Date: 20151015
  Transmission Date: 20160304
  Serious: Yes (Other)
  Sender: FDA-Public Use
  Company Number: US-MDT-ADR-2015-01901

PATIENT
  Age: 49 Year
  Sex: Female

DRUGS (2)
  1. ORAL BACLOFEN [Suspect]
     Active Substance: BACLOFEN
  2. LIORESAL [Suspect]
     Active Substance: BACLOFEN
     Indication: MUSCLE SPASTICITY

REACTIONS (7)
  - Pruritus [None]
  - Inability to afford medication [None]
  - Hot flush [None]
  - Therapy cessation [None]
  - Drug withdrawal syndrome [None]
  - Vision blurred [None]
  - Muscle spasticity [None]
